FAERS Safety Report 24388940 (Version 1)
Quarter: 2024Q4

REPORT INFORMATION
  Report Type: Spontaneous
  Country: KR (occurrence: KR)
  Receive Date: 20241002
  Receipt Date: 20241002
  Transmission Date: 20250114
  Serious: Yes (Other)
  Sender: BRISTOL MYERS SQUIBB
  Company Number: KR-BRISTOL-MYERS SQUIBB COMPANY-2024-154344

PATIENT
  Age: 55 Year
  Sex: Female
  Weight: 51 kg

DRUGS (8)
  1. BARACLUDE [Suspect]
     Active Substance: ENTECAVIR
     Indication: Product used for unknown indication
     Dates: start: 20191129
  2. CHLORPHENIRAMINE MALEATE [Concomitant]
     Active Substance: CHLORPHENIRAMINE MALEATE
     Dates: start: 20200528, end: 20200528
  3. CHLORPHENIRAMINE MALEATE [Concomitant]
     Active Substance: CHLORPHENIRAMINE MALEATE
     Dates: start: 20200515, end: 20200515
  4. PACLITAXEL [Concomitant]
     Active Substance: PACLITAXEL
     Dates: start: 20200521, end: 20200521
  5. PACLITAXEL [Concomitant]
     Active Substance: PACLITAXEL
     Dates: start: 20200515, end: 20200515
  6. DEXAMETHASONE SODIUM PHOSPHATE [Concomitant]
     Active Substance: DEXAMETHASONE SODIUM PHOSPHATE
     Dates: start: 20200521, end: 20200521
  7. DEXAMETHASONE SODIUM PHOSPHATE [Concomitant]
     Active Substance: DEXAMETHASONE SODIUM PHOSPHATE
     Dates: start: 20200515, end: 20200515
  8. PREGABALIN [Concomitant]
     Active Substance: PREGABALIN
     Dates: start: 20200514

REACTIONS (1)
  - Neutropenia [Recovered/Resolved]

NARRATIVE: CASE EVENT DATE: 20200528
